FAERS Safety Report 17308378 (Version 2)
Quarter: 2020Q1

REPORT INFORMATION
  Report Type: Spontaneous
  Country: US (occurrence: US)
  Receive Date: 20200123
  Receipt Date: 20200124
  Transmission Date: 20200409
  Serious: No
  Sender: FDA-Public Use
  Company Number: NVSC2020US014772

PATIENT
  Sex: Female
  Weight: 108.86 kg

DRUGS (1)
  1. PIQRAY [Suspect]
     Active Substance: ALPELISIB
     Indication: BREAST CANCER STAGE IV
     Dosage: 250 MG, QD
     Route: 048
     Dates: start: 20191012

REACTIONS (1)
  - Blood alkaline phosphatase increased [Unknown]
